FAERS Safety Report 24527245 (Version 1)
Quarter: 2024Q4

REPORT INFORMATION
  Report Type: Report from Study
  Country: US (occurrence: US)
  Receive Date: 20241021
  Receipt Date: 20241021
  Transmission Date: 20250114
  Serious: No
  Sender: ROCHE
  Company Number: US-ROCHE-3515895

PATIENT
  Age: 68 Year
  Sex: Female

DRUGS (1)
  1. COTELLIC [Suspect]
     Active Substance: COBIMETINIB
     Indication: Neoplasm malignant
     Dosage: TAKE 1 TABLET (20 MG) BY MOUTH DAILY.
     Route: 048

REACTIONS (1)
  - Nausea [Unknown]
